FAERS Safety Report 8165197-9 (Version None)
Quarter: 2012Q1

REPORT INFORMATION
  Report Type: 
  Country: None (occurrence: None)
  Receive Date: 20120227
  Receipt Date: 20120221
  Transmission Date: 20120608
  Serious: No
  Sender: FDA-Public Use
  Company Number: US-PFIZER INC-2012042317

PATIENT
  Sex: Female
  Weight: 49.887 kg

DRUGS (5)
  1. ADDERALL 5 [Concomitant]
     Dosage: UNK
  2. IRON SLOW FE [Concomitant]
     Dosage: UNK
  3. LYRICA [Suspect]
     Indication: PAIN
     Dosage: 150 MG, 2X/DAY
     Route: 048
     Dates: start: 20111201
  4. AMBIEN [Concomitant]
     Dosage: UNK
  5. SPRINTEC [Concomitant]
     Dosage: UNK

REACTIONS (7)
  - AFFECT LABILITY [None]
  - FATIGUE [None]
  - IRRITABILITY [None]
  - PAIN [None]
  - AGITATION [None]
  - MEMORY IMPAIRMENT [None]
  - WEIGHT INCREASED [None]
